FAERS Safety Report 25448308 (Version 4)
Quarter: 2025Q3

REPORT INFORMATION
  Report Type: Spontaneous
  Country: US (occurrence: US)
  Receive Date: 20250617
  Receipt Date: 20250910
  Transmission Date: 20251021
  Serious: Yes (Other)
  Sender: BRISTOL-MYERS SQUIBB COMPANY
  Company Number: US-BRISTOL-MYERS SQUIBB COMPANY-2025-083905

PATIENT
  Sex: Female

DRUGS (1)
  1. BREYANZI [Suspect]
     Active Substance: LISOCABTAGENE MARALEUCEL
     Indication: Product used for unknown indication
     Dates: start: 20250421

REACTIONS (5)
  - Atrial fibrillation [Unknown]
  - Cytokine release syndrome [Unknown]
  - Cerebrovascular accident [Unknown]
  - Septic shock [Unknown]
  - Coagulopathy [Unknown]
